FAERS Safety Report 23284252 (Version 1)
Quarter: 2023Q4

REPORT INFORMATION
  Report Type: Spontaneous
  Country: HR (occurrence: HR)
  Receive Date: 20231211
  Receipt Date: 20231211
  Transmission Date: 20240109
  Serious: Yes (Other)
  Sender: FDA-Public Use
  Company Number: HR-BAYER-2023A175695

PATIENT
  Age: 67 Year
  Sex: Male

DRUGS (16)
  1. FINERENONE [Suspect]
     Active Substance: FINERENONE
     Dosage: 10 MG
  2. AMLODIPINE BESYLATE\INDAPAMIDE\PERINDOPRIL ARGININE [Concomitant]
     Active Substance: AMLODIPINE BESYLATE\INDAPAMIDE\PERINDOPRIL ARGININE
  3. TORVAS [Concomitant]
  4. GLIQUIDONE [Concomitant]
     Active Substance: GLIQUIDONE
  5. NEBIVOLOL [Concomitant]
     Active Substance: NEBIVOLOL
  6. BERLITHION [Concomitant]
  7. LERCANIDIPINE [Concomitant]
     Active Substance: LERCANIDIPINE
  8. TELMISARTAN [Concomitant]
     Active Substance: TELMISARTAN
  9. TORSEMIDE [Concomitant]
     Active Substance: TORSEMIDE
  10. INSULIN GLARGINE [Concomitant]
     Active Substance: INSULIN GLARGINE
  11. TELMISARTAN [Concomitant]
     Active Substance: TELMISARTAN
  12. LERCANIDIPINE HYDROCHLORIDE [Concomitant]
     Active Substance: LERCANIDIPINE HYDROCHLORIDE
  13. ATORVASTATIN CALCIUM [Concomitant]
     Active Substance: ATORVASTATIN CALCIUM
  14. DAPAGLIFLOZIN [Concomitant]
     Active Substance: DAPAGLIFLOZIN
  15. CORDIPIN XL [Concomitant]
  16. MOXONIDINE [Concomitant]
     Active Substance: MOXONIDINE

REACTIONS (1)
  - Arteriosclerosis [None]
